FAERS Safety Report 4380543-X (Version None)
Quarter: 2004Q2

REPORT INFORMATION
  Report Type: 
  Country: None (occurrence: None)
  Receive Date: 20040618
  Receipt Date: 20040607
  Transmission Date: 20050107
  Serious: Yes (Other)
  Sender: FDA-Public Use
  Company Number: US-MERCK-0406USA00593

PATIENT
  Age: 57 Year
  Sex: Female

DRUGS (5)
  1. FOSAMAX [Suspect]
     Indication: OSTEOPENIA
     Route: 048
     Dates: start: 20011015, end: 20030101
  2. FOSAMAX [Suspect]
     Route: 048
     Dates: start: 20030109, end: 20040101
  3. ATENOLOL [Concomitant]
     Route: 065
  4. LIPITOR [Concomitant]
     Route: 065
  5. VAGIFEM [Concomitant]
     Route: 065
     Dates: start: 20030109

REACTIONS (1)
  - NON-HODGKIN'S LYMPHOMA [None]
